FAERS Safety Report 7285843-1 (Version None)
Quarter: 2011Q1

REPORT INFORMATION
  Report Type: 
  Country: None (occurrence: None)
  Receive Date: 20110210
  Receipt Date: 20110203
  Transmission Date: 20110831
  Serious: No
  Sender: FDA-Public Use
  Company Number: US-BRISTOL-MYERS SQUIBB COMPANY-15514193

PATIENT
  Sex: Female

DRUGS (2)
  1. ENOXAPARIN SODIUM [Suspect]
  2. COUMADIN [Suspect]
     Indication: ATRIAL FIBRILLATION
     Route: 048

REACTIONS (2)
  - NODULE [None]
  - CONTUSION [None]
